FAERS Safety Report 21370253 (Version 1)
Quarter: 2022Q3

REPORT INFORMATION
  Report Type: Spontaneous
  Country: DE (occurrence: DE)
  Receive Date: 20220923
  Receipt Date: 20220923
  Transmission Date: 20221027
  Serious: Yes (Hospitalization)
  Sender: FDA-Public Use
  Company Number: DE-ADRED-06473-02

PATIENT
  Age: 89 Year
  Sex: Female

DRUGS (10)
  1. SPIRONOLACTONE [Interacting]
     Active Substance: SPIRONOLACTONE
     Indication: Product used for unknown indication
     Route: 048
  2. RAMIPRIL [Interacting]
     Active Substance: RAMIPRIL
     Indication: Product used for unknown indication
     Route: 048
  3. POTASSIUM CITRATE [Interacting]
     Active Substance: POTASSIUM CITRATE
     Indication: Product used for unknown indication
     Dosage: MG, JEDEN ZWEITEN TAG MITTAGS (260 MG, EVERY OTHER DAY AT NOON)
  4. POTASSIUM CHLORIDE [Suspect]
     Active Substance: POTASSIUM CHLORIDE
     Indication: Product used for unknown indication
     Route: 048
  5. VERAPAMIL [Concomitant]
     Active Substance: VERAPAMIL HYDROCHLORIDE
     Indication: Product used for unknown indication
     Route: 048
  6. VERAPAMIL [Concomitant]
     Active Substance: VERAPAMIL HYDROCHLORIDE
     Route: 048
  7. LEVOTHYROXINE SODIUM [Concomitant]
     Active Substance: LEVOTHYROXINE SODIUM
     Indication: Product used for unknown indication
     Dosage: MONTAG BIS FREITAG MORGENS EINE TABLETTE SAMSTAG UND SONNTAG EINE HALBE TABLETTE MORGENS (FRIDAY ONE
     Route: 048
  8. APIXABAN [Concomitant]
     Active Substance: APIXABAN
     Indication: Product used for unknown indication
     Route: 048
  9. MAGNESIUM [Concomitant]
     Active Substance: MAGNESIUM
     Indication: Product used for unknown indication
     Route: 048
  10. PREGABALIN [Concomitant]
     Active Substance: PREGABALIN
     Indication: Product used for unknown indication
     Route: 048

REACTIONS (4)
  - Dyspnoea [Unknown]
  - Palpitations [Unknown]
  - Labelled drug-drug interaction medication error [Unknown]
  - Therapeutic drug monitoring analysis not performed [Unknown]
